FAERS Safety Report 8766544 (Version 1)
Quarter: 2012Q4

REPORT INFORMATION
  Report Type: 
  Country: US (occurrence: US)
  Receive Date: 20120904
  Receipt Date: 20120904
  Transmission Date: 20130627
  Serious: No
  Sender: FDA-Public Use
  Company Number: US-B.I. PHARMACEUTICALS,INC./RIDGEFIELD-2012-BP-20925BP

PATIENT
  Sex: Male

DRUGS (9)
  1. AGGRENOX [Suspect]
     Indication: CEREBROVASCULAR ACCIDENT PROPHYLAXIS
     Route: 048
     Dates: start: 20120427
  2. AGGRENOX [Suspect]
     Route: 048
     Dates: start: 20120827, end: 20120827
  3. CADUET [Concomitant]
     Indication: HYPERTENSION
  4. CADUET [Concomitant]
     Indication: BLOOD CHOLESTEROL INCREASED
  5. HCTZ [Concomitant]
     Indication: DIURETIC THERAPY
  6. OMEPRAZOLE [Concomitant]
     Indication: GASTROOESOPHAGEAL REFLUX DISEASE
  7. OMEPRAZOLE [Concomitant]
  8. LEVOTHYROXINE [Concomitant]
     Indication: HYPOTHYROIDISM
  9. FLOMAX [Concomitant]
     Indication: BENIGN PROSTATIC HYPERPLASIA

REACTIONS (3)
  - Back pain [Recovered/Resolved]
  - Back pain [Recovered/Resolved]
  - Incorrect dose administered [Unknown]
